FAERS Safety Report 9720848 (Version 2)
Quarter: 2014Q1

REPORT INFORMATION
  Report Type: Spontaneous
  Country: FR (occurrence: FR)
  Receive Date: 20131129
  Receipt Date: 20140110
  Transmission Date: 20141002
  Serious: Yes (Disabling, Other)
  Sender: FDA-Public Use
  Company Number: FR-ASTRAZENECA-2013SE86133

PATIENT
  Age: 85 Year
  Sex: Male

DRUGS (1)
  1. ZOLADEX [Suspect]
     Indication: PROSTATE CANCER
     Route: 058
     Dates: start: 2007, end: 2011

REACTIONS (3)
  - Abnormal behaviour [Recovered/Resolved]
  - Paralysis [Not Recovered/Not Resolved]
  - Aphasia [Not Recovered/Not Resolved]
